FAERS Safety Report 9228542 (Version 2)
Quarter: 2013Q2

REPORT INFORMATION
  Report Type: Report from Study
  Country: CH (occurrence: CH)
  Receive Date: 20130412
  Receipt Date: 20130610
  Transmission Date: 20140414
  Serious: Yes (Death, Other)
  Sender: FDA-Public Use
  Company Number: CH-ROCHE-1211103

PATIENT
  Sex: 0

DRUGS (1)
  1. ALTEPLASE [Suspect]
     Indication: ISCHAEMIC STROKE
     Route: 042

REACTIONS (7)
  - Death [Fatal]
  - Cerebral infarction [Fatal]
  - Myocardial infarction [Fatal]
  - Pneumonia [Fatal]
  - Haemorrhage intracranial [Fatal]
  - Pulmonary embolism [Fatal]
  - Ischaemic stroke [Unknown]
